FAERS Safety Report 20012686 (Version 2)
Quarter: 2021Q4

REPORT INFORMATION
  Report Type: Spontaneous
  Country: FR (occurrence: FR)
  Receive Date: 20211029
  Receipt Date: 20211112
  Transmission Date: 20220303
  Serious: Yes (Death, Hospitalization)
  Sender: FDA-Public Use
  Company Number: FR-VERTEX PHARMACEUTICALS-2021-016697

PATIENT
  Age: 74 Year
  Sex: Female

DRUGS (2)
  1. ELEXACAFTOR\IVACAFTOR\TEZACAFTOR [Suspect]
     Active Substance: ELEXACAFTOR\IVACAFTOR\TEZACAFTOR
     Indication: Cystic fibrosis
     Dosage: 2 TABS (75MG IVACAFTOR/50MG TEZACAFTOR/100MG ELEXACAFTOR) AM
     Route: 048
     Dates: start: 202107, end: 202108
  2. KALYDECO [Suspect]
     Active Substance: IVACAFTOR
     Indication: Cystic fibrosis
     Dosage: 1 TABLET IN PM
     Route: 048
     Dates: start: 202107, end: 202108

REACTIONS (3)
  - Rash [Recovered/Resolved]
  - Infective pulmonary exacerbation of cystic fibrosis [Fatal]
  - Pseudomonas infection [Fatal]

NARRATIVE: CASE EVENT DATE: 20210701
